FAERS Safety Report 8481585-5 (Version None)
Quarter: 2012Q3

REPORT INFORMATION
  Report Type: 
  Country: None (occurrence: None)
  Receive Date: 20120702
  Receipt Date: 20120626
  Transmission Date: 20120928
  Serious: Yes (Hospitalization)
  Sender: FDA-Public Use
  Company Number: US-AMGEN-USASP2012039527

PATIENT
  Age: 51 Year
  Sex: Female

DRUGS (2)
  1. ENBREL [Suspect]
     Indication: PSORIATIC ARTHROPATHY
     Dosage: 50 MG, QWK
     Dates: start: 20031009
  2. HUMIRA [Concomitant]
     Dosage: UNK

REACTIONS (5)
  - CHOLECYSTECTOMY [None]
  - UMBILICAL HERNIA [None]
  - PSORIATIC ARTHROPATHY [None]
  - ABDOMINAL PAIN [None]
  - PSORIASIS [None]
